FAERS Safety Report 16355130 (Version 1)
Quarter: 2019Q2

REPORT INFORMATION
  Report Type: Spontaneous
  Country: FR (occurrence: FR)
  Receive Date: 20190524
  Receipt Date: 20190524
  Transmission Date: 20190711
  Serious: Yes (Hospitalization)
  Sender: FDA-Public Use
  Company Number: FR-009507513-1905FRA010163

PATIENT
  Age: 42 Year
  Sex: Female
  Weight: 71 kg

DRUGS (4)
  1. NIVESTIM [Suspect]
     Active Substance: FILGRASTIM
     Indication: COLONY STIMULATING FACTOR THERAPY
     Dosage: 30 MEGA-INTERNATIONAL UNIT, QD
     Route: 058
     Dates: start: 20190329, end: 20190403
  2. PACLITAXEL. [Suspect]
     Active Substance: PACLITAXEL
     Indication: BREAST CANCER
     Dosage: 6 MG/ML, 325.8 MILLIGRAM, QD
     Route: 042
     Dates: start: 20190328, end: 20190328
  3. EMEND [Suspect]
     Active Substance: APREPITANT
     Indication: PROPHYLAXIS OF NAUSEA AND VOMITING
     Dosage: 1 DOSAGE FORM, QD
     Route: 048
     Dates: start: 20190328, end: 20190330
  4. CARBOPLATIN ACCORD [Suspect]
     Active Substance: CARBOPLATIN
     Indication: BREAST CANCER
     Dosage: 10 MG/ML, 744 MILLIGRAM, QD
     Route: 042
     Dates: start: 20190328, end: 20190328

REACTIONS (1)
  - Carotid artery dissection [Recovering/Resolving]

NARRATIVE: CASE EVENT DATE: 20190330
